FAERS Safety Report 21423254 (Version 1)
Quarter: 2022Q4

REPORT INFORMATION
  Report Type: Spontaneous
  Country: US (occurrence: None)
  Receive Date: 20221006
  Receipt Date: 20221006
  Transmission Date: 20230113
  Serious: No
  Sender: FDA-Public Use
  Company Number: None

PATIENT
  Age: 61 Year
  Sex: Male

DRUGS (1)
  1. CABENUVA [Suspect]
     Active Substance: CABOTEGRAVIR\RILPIVIRINE
     Route: 030

REACTIONS (5)
  - Pruritus [None]
  - Swelling [None]
  - Rash [None]
  - Skin exfoliation [None]
  - Post procedural complication [None]

NARRATIVE: CASE EVENT DATE: 20220915
